FAERS Safety Report 8129059-5 (Version None)
Quarter: 2012Q1

REPORT INFORMATION
  Report Type: 
  Country: None (occurrence: None)
  Receive Date: 20120210
  Receipt Date: 20110826
  Transmission Date: 20120608
  Serious: No
  Sender: FDA-Public Use
  Company Number: US-BRISTOL-MYERS SQUIBB COMPANY-16008815

PATIENT
  Age: 80 Year
  Sex: Female

DRUGS (2)
  1. NAPROXEN (ALEVE) [Concomitant]
     Dosage: LOW DOSE.
  2. ORENCIA [Suspect]
     Indication: RHEUMATOID ARTHRITIS
     Dosage: INITIAL DOSE 750MG INCREASED TO 1000MG AGAIN REDUCE TO 750MG MONTHLY.TAKING 1-2 YEARS.

REACTIONS (1)
  - PSORIASIS [None]
